FAERS Safety Report 4378498-7 (Version None)
Quarter: 2004Q2

REPORT INFORMATION
  Report Type: 
  Country: None (occurrence: None)
  Receive Date: 20040609
  Receipt Date: 20040526
  Transmission Date: 20050107
  Serious: Yes (Hospitalization, Disabling)
  Sender: FDA-Public Use
  Company Number: GB-JNJFOC-20040506180

PATIENT
  Age: 63 Year
  Sex: Female

DRUGS (11)
  1. REMICADE     (INFLIXIMAB, RECOMBINANT) [Suspect]
     Indication: RHEUMATOID ARTHRITIS
     Dosage: 210 MG, INTRAVENOUS
     Route: 042
     Dates: start: 20031110
  2. THYROXINE (LEVOTHYROXINE SODIUM) [Concomitant]
  3. FOLIC ACID [Concomitant]
  4. PREDNISOLONE [Concomitant]
  5. CALCICHEW (CALCIUM CARBONATE) [Concomitant]
  6. ALENDRONIC ACID (ALENDRONIC ACID) [Concomitant]
  7. ATENOLOL [Concomitant]
  8. RANITIDINE [Concomitant]
  9. RIFINAH (RIFINAH) [Concomitant]
  10. ETODOLAC [Concomitant]
  11. METHOTREXATE [Concomitant]

REACTIONS (3)
  - METASTATIC NEOPLASM [None]
  - SPINAL COMPRESSION FRACTURE [None]
  - SQUAMOUS CELL CARCINOMA [None]
